FAERS Safety Report 8445904-8 (Version None)
Quarter: 2012Q2

REPORT INFORMATION
  Report Type: 
  Country: None (occurrence: None)
  Receive Date: 20120323
  Receipt Date: 20111129
  Transmission Date: 20120825
  Serious: Yes (Hospitalization)
  Sender: FDA-Public Use
  Company Number: 163-21880-11091001

PATIENT
  Age: 79 Year
  Sex: Male
  Weight: 68.5 kg

DRUGS (3)
  1. REVLIMID [Suspect]
     Indication: MULTIPLE MYELOMA
     Dosage: 15 MG, DAILY X 21 DAYS, PO
     Route: 048
     Dates: start: 20110624, end: 20111110
  2. DEXAMETHASONE [Concomitant]
  3. ZOMETA [Concomitant]

REACTIONS (3)
  - CLOSTRIDIAL INFECTION [None]
  - VOMITING [None]
  - DIARRHOEA [None]
